FAERS Safety Report 6319796-7 (Version None)
Quarter: 2009Q3

REPORT INFORMATION
  Report Type: 
  Country: None (occurrence: None)
  Receive Date: 20090822
  Receipt Date: 20080926
  Transmission Date: 20100115
  Serious: No
  Sender: FDA-Public Use
  Company Number: US-ABBOTT-08P-163-0478418-00

PATIENT
  Sex: Female

DRUGS (12)
  1. NIASPAN [Suspect]
     Indication: HIGH DENSITY LIPOPROTEIN DECREASED
     Route: 048
     Dates: start: 20080925, end: 20080925
  2. LISINOPRIL [Concomitant]
     Indication: DRUG USE FOR UNKNOWN INDICATION
  3. POTASSIUM CHLORIDE [Concomitant]
     Indication: DRUG USE FOR UNKNOWN INDICATION
  4. LINBREL [Concomitant]
     Indication: DRUG USE FOR UNKNOWN INDICATION
  5. FUROSEMIDE [Concomitant]
     Indication: DRUG USE FOR UNKNOWN INDICATION
  6. ETANERCEPT [Concomitant]
     Indication: PSORIATIC ARTHROPATHY
     Dosage: 50 MG/ 50 ML
     Route: 050
  7. METFORMIN [Concomitant]
     Indication: DRUG USE FOR UNKNOWN INDICATION
  8. OXYCODONE HCL [Concomitant]
     Indication: DRUG USE FOR UNKNOWN INDICATION
  9. LEVOTHYROXINE SODIUM [Concomitant]
     Indication: DRUG USE FOR UNKNOWN INDICATION
  10. ESTAZOLAM [Concomitant]
     Indication: DRUG USE FOR UNKNOWN INDICATION
  11. ESCITALOPRAM OXALATE [Concomitant]
     Indication: DRUG USE FOR UNKNOWN INDICATION
  12. MODAFINIL [Concomitant]
     Indication: DRUG USE FOR UNKNOWN INDICATION

REACTIONS (2)
  - ERYTHEMA [None]
  - FEELING HOT [None]
